FAERS Safety Report 4452180-X (Version None)
Quarter: 2004Q3

REPORT INFORMATION
  Report Type: 
  Country: None (occurrence: None)
  Receive Date: 20040916
  Receipt Date: 20040916
  Transmission Date: 20050211
  Serious: Yes (Life-Threatening, Hospitalization)
  Sender: FDA-Public Use
  Company Number: None

PATIENT
  Weight: 4.96 kg

DRUGS (10)
  1. INTRALIPID 20% [Suspect]
     Indication: GASTROSCHISIS
     Dosage: 24 ML IN TPN DAILY
     Dates: start: 20040825, end: 20040915
  2. INTRALIPID 20% [Suspect]
  3. INTRALIPID 20% [Suspect]
  4. DEXTROSE 15% [Concomitant]
  5. TROPHAMINE [Concomitant]
  6. CYSTEINE [Concomitant]
  7. M.V.I. [Concomitant]
  8. ZANTAC [Concomitant]
  9. LEVOCOMITINE [Concomitant]
  10. HEPARIN [Concomitant]

REACTIONS (4)
  - CATHETER SEPSIS [None]
  - CHOLESTASIS [None]
  - CONDITION AGGRAVATED [None]
  - LIVER FUNCTION TEST ABNORMAL [None]
